FAERS Safety Report 23181709 (Version 2)
Quarter: 2023Q4

REPORT INFORMATION
  Report Type: Spontaneous
  Country: GB (occurrence: GB)
  Receive Date: 20231114
  Receipt Date: 20231123
  Transmission Date: 20240110
  Serious: Yes (Hospitalization, Other)
  Sender: FDA-Public Use
  Company Number: GB-TAKEDA-2021TUS082084

PATIENT

DRUGS (26)
  1. ACYCLOVIR [Suspect]
     Active Substance: ACYCLOVIR
     Dosage: 20 MILLIGRAM, BID
     Route: 065
  2. ACYCLOVIR [Suspect]
     Active Substance: ACYCLOVIR
     Indication: Product used for unknown indication
     Dosage: 400 MILLIGRAM, BID
     Route: 065
  3. CALCIUM CARBONATE\CHOLECALCIFEROL [Suspect]
     Active Substance: CALCIUM CARBONATE\CHOLECALCIFEROL
     Indication: Product used for unknown indication
     Dosage: UNKNOWN
     Route: 065
  4. COTRIMOXAZOLE [Suspect]
     Active Substance: SULFAMETHOXAZOLE\TRIMETHOPRIM
     Indication: Product used for unknown indication
     Dosage: UNKNOWN
     Route: 065
  5. DEXAMETHASONE [Suspect]
     Active Substance: DEXAMETHASONE
     Indication: Product used for unknown indication
     Dosage: 10 MILLIGRAM, (ON DAY 1, 8, 15 AND 22 DAYS)
     Route: 065
  6. FENPIVERINIUM BROMIDE [Suspect]
     Active Substance: FENPIVERINIUM BROMIDE
     Indication: Product used for unknown indication
     Dosage: UNKNOWN
     Route: 065
  7. INTERFERON ALFA-2B [Suspect]
     Active Substance: INTERFERON ALFA-2B
     Indication: Product used for unknown indication
     Dosage: 20 MILLIGRAM, BID
     Route: 065
  8. INTERFERON ALFA-2B [Suspect]
     Active Substance: INTERFERON ALFA-2B
     Dosage: 400 MILLIGRAM, BID
     Route: 065
  9. LIDOCAINE [Suspect]
     Active Substance: LIDOCAINE
     Dosage: 20 MILLIGRAM, BID
     Route: 065
  10. LIDOCAINE [Suspect]
     Active Substance: LIDOCAINE
     Indication: Product used for unknown indication
     Dosage: 400 MILLIGRAM, BID
     Route: 065
  11. LOPERAMIDE [Suspect]
     Active Substance: LOPERAMIDE
     Indication: Product used for unknown indication
     Dosage: 2 MILLIGRAM
     Route: 065
  12. METAMIZOLE [Suspect]
     Active Substance: METAMIZOLE
     Dosage: UNK, BID
     Route: 065
  13. METOCLOPRAMIDE [Suspect]
     Active Substance: METOCLOPRAMIDE
     Indication: Product used for unknown indication
     Dosage: 10 MILLIGRAM, Q8H
     Route: 065
  14. EPOETIN BETA [Suspect]
     Active Substance: ERYTHROPOIETIN
     Indication: Product used for unknown indication
     Dosage: 2000 INTERNATIONAL UNIT, BID
     Route: 058
  15. NINLARO [Suspect]
     Active Substance: IXAZOMIB CITRATE
     Indication: Product used for unknown indication
     Dosage: 2.3 MILLIGRAM, WEEKLY
     Route: 065
  16. OMEPRAZOLE [Suspect]
     Active Substance: OMEPRAZOLE
     Indication: Product used for unknown indication
     Dosage: 20 MILLIGRAM, QD
     Route: 065
  17. PANCREATIN [Suspect]
     Active Substance: PANCRELIPASE
     Indication: Product used for unknown indication
     Dosage: 10 MILLIGRAM, TID
     Route: 065
  18. PITOFENONE HYDROCHLORIDE [Suspect]
     Active Substance: PITOFENONE HYDROCHLORIDE
     Indication: Product used for unknown indication
     Dosage: UNK, QD
     Route: 065
  19. REVLIMID [Suspect]
     Active Substance: LENALIDOMIDE
     Dosage: 15 MILLIGRAM
     Route: 065
  20. REVLIMID [Suspect]
     Active Substance: LENALIDOMIDE
     Indication: Product used for unknown indication
     Dosage: 400 MILLIGRAM
     Route: 065
  21. REVLIMID [Suspect]
     Active Substance: LENALIDOMIDE
     Dosage: 5 MILLIGRAM
     Route: 065
  22. SIMETHICONE (DIMETHICONE) [Suspect]
     Active Substance: DIMETHICONE
     Dosage: 10 MILLIGRAM, TID
     Route: 065
  23. SIMETHICONE (DIMETHICONE) [Suspect]
     Active Substance: DIMETHICONE
     Indication: Product used for unknown indication
     Dosage: 2 MILLIGRAM
     Route: 065
  24. XARELTO [Suspect]
     Active Substance: RIVAROXABAN
     Dosage: 10 MILLIGRAM, QD
     Route: 065
  25. XARELTO [Suspect]
     Active Substance: RIVAROXABAN
     Dosage: 15 MILLIGRAM, QD
     Route: 065
  26. XARELTO [Suspect]
     Active Substance: RIVAROXABAN
     Indication: Product used for unknown indication
     Dosage: 20 MILLIGRAM, QD
     Route: 065

REACTIONS (16)
  - Neutrophil count abnormal [Unknown]
  - Chromaturia [Unknown]
  - Productive cough [Unknown]
  - Hypoaesthesia [Unknown]
  - Malaise [Unknown]
  - Inappropriate schedule of product administration [Unknown]
  - Balance disorder [Unknown]
  - Pyrexia [Unknown]
  - Limb discomfort [Unknown]
  - Gait disturbance [Unknown]
  - Cerebrovascular accident [Unknown]
  - Fall [Unknown]
  - Confusional state [Unknown]
  - Musculoskeletal chest pain [Unknown]
  - Feeling cold [Unknown]
  - Decreased appetite [Unknown]
